FAERS Safety Report 6257667-5 (Version None)
Quarter: 2009Q3

REPORT INFORMATION
  Report Type: 
  Country: None (occurrence: None)
  Receive Date: 20090706
  Receipt Date: 20090624
  Transmission Date: 20100115
  Serious: Yes (Other)
  Sender: FDA-Public Use
  Company Number: GB-TEVA-199908ISR

PATIENT
  Age: 41 Year
  Sex: Male

DRUGS (3)
  1. GABAPENTIN [Suspect]
     Route: 048
  2. ZONISAMIDE [Interacting]
     Indication: EPILEPSY
     Route: 048
     Dates: start: 20080605
  3. ZONISAMIDE [Interacting]
     Route: 048
     Dates: start: 20090101

REACTIONS (2)
  - DRUG INTERACTION [None]
  - MUTISM [None]
